FAERS Safety Report 17042130 (Version 3)
Quarter: 2022Q1

REPORT INFORMATION
  Report Type: Spontaneous
  Country: BR (occurrence: BR)
  Receive Date: 20191118
  Receipt Date: 20220303
  Transmission Date: 20220423
  Serious: Yes (Disabling)
  Sender: FDA-Public Use
  Company Number: BR-SA-2019SA093324

PATIENT
  Age: 36 Year
  Sex: Female
  Weight: 60 kg

DRUGS (2)
  1. FABRAZYME [Suspect]
     Active Substance: AGALSIDASE BETA
     Indication: Fabry^s disease
     Dosage: 1 MG/KG, QOW (2 VIALS)
     Route: 041
     Dates: start: 2014
  2. FABRAZYME [Suspect]
     Active Substance: AGALSIDASE BETA
     Dosage: 2 DF, Q15D

REACTIONS (7)
  - Loss of personal independence in daily activities [Unknown]
  - Paraesthesia [Recovered/Resolved]
  - Quality of life decreased [Recovering/Resolving]
  - Abdominal pain [Recovered/Resolved]
  - Headache [Recovered/Resolved]
  - Symptom recurrence [Unknown]
  - Impaired quality of life [Unknown]

NARRATIVE: CASE EVENT DATE: 20180928
